FAERS Safety Report 15598341 (Version 6)
Quarter: 2020Q3

REPORT INFORMATION
  Report Type: Report from Study
  Country: CO (occurrence: CO)
  Receive Date: 20181108
  Receipt Date: 20200923
  Transmission Date: 20201102
  Serious: Yes (Hospitalization)
  Sender: FDA-Public Use
  Company Number: CO-ASTELLAS-2018US046535

PATIENT
  Age: 55 Year
  Sex: Male

DRUGS (7)
  1. TACROLIMUS. [Suspect]
     Active Substance: TACROLIMUS
     Indication: RENAL TRANSPLANT
     Dosage: 8 MG, ONCE DAILY (1 CAPSULE OF 5 MG AND 3 CAPSULES OF 1 MG)
     Route: 048
     Dates: start: 20180807
  2. TACROLIMUS. [Suspect]
     Active Substance: TACROLIMUS
     Dosage: 5 MG, ONCE DAILY (1 CAPSULE OF 5 MG)
     Route: 048
  3. VALGANCICLOVIR. [Concomitant]
     Active Substance: VALGANCICLOVIR
     Indication: ANTIVIRAL TREATMENT
     Dosage: 900 MG, ONCE DAILY (2 0F 450 MG)
     Route: 048
     Dates: start: 20180807
  4. MYCOPHENOLATE [Concomitant]
     Active Substance: MYCOPHENOLIC ACID
     Indication: TRANSPLANT
     Route: 048
     Dates: start: 20180807
  5. TACROLIMUS. [Suspect]
     Active Substance: TACROLIMUS
     Dosage: 4 MG (CAPSULES OF 1 MG), ONCE DAILY
     Route: 048
     Dates: start: 202001
  6. OMEPRAZOLE. [Concomitant]
     Active Substance: OMEPRAZOLE
     Indication: GASTRITIS
     Route: 048
     Dates: start: 2008
  7. PREDNISOLONE. [Concomitant]
     Active Substance: PREDNISOLONE
     Indication: TRANSPLANT
     Route: 048
     Dates: start: 20180807

REACTIONS (4)
  - Malaise [Recovered/Resolved]
  - Urinary tract infection [Recovered/Resolved]
  - Urinary tract infection [Recovered/Resolved]
  - Urinary tract infection [Recovered/Resolved]

NARRATIVE: CASE EVENT DATE: 20181022
